FAERS Safety Report 7464212-5 (Version None)
Quarter: 2011Q2

REPORT INFORMATION
  Report Type: 
  Country: None (occurrence: None)
  Receive Date: 20110506
  Receipt Date: 20110427
  Transmission Date: 20111010
  Serious: Yes (Hospitalization, Other)
  Sender: FDA-Public Use
  Company Number: US-ASTRAZENECA-2011SE24688

PATIENT
  Age: 78 Year
  Sex: Female

DRUGS (2)
  1. NEXIUM [Suspect]
     Route: 048
  2. CRESTOR [Suspect]
     Route: 048

REACTIONS (4)
  - CORONARY ARTERIAL STENT INSERTION [None]
  - MALAISE [None]
  - DIALYSIS [None]
  - RENAL ARTERY STENT PLACEMENT [None]
